FAERS Safety Report 12643111 (Version 1)
Quarter: 2016Q3

REPORT INFORMATION
  Report Type: Spontaneous
  Country: US (occurrence: US)
  Receive Date: 20160811
  Receipt Date: 20160811
  Transmission Date: 20161109
  Serious: No
  Sender: FDA-Public Use
  Company Number: US-BEH-2016072126

PATIENT
  Age: 4 Year
  Sex: Male
  Weight: 19.48 kg

DRUGS (6)
  1. HIZENTRA [Suspect]
     Active Substance: HUMAN IMMUNOGLOBULIN G
     Indication: CONGENITAL HYPOGAMMAGLOBULINAEMIA
     Dosage: 1.5 G, QW
     Route: 058
     Dates: start: 20130906
  2. DIPHENHYDRAMINE. [Concomitant]
     Active Substance: DIPHENHYDRAMINE
  3. EPIPEN JR [Concomitant]
     Active Substance: EPINEPHRINE
  4. TRI-VITAMIN WITH FLUORIDE [Concomitant]
     Active Substance: ASCORBIC ACID\CHOLECALCIFEROL\SODIUM FLUORIDE\VITAMIN A PALMITATE
  5. LMX                                /00033401/ [Concomitant]
  6. BACTRIM DS [Concomitant]
     Active Substance: SULFAMETHOXAZOLE\TRIMETHOPRIM

REACTIONS (1)
  - Ear infection [Unknown]

NARRATIVE: CASE EVENT DATE: 20160404
